FAERS Safety Report 13711232 (Version 1)
Quarter: 2017Q3

REPORT INFORMATION
  Report Type: Spontaneous
  Country: GR (occurrence: GR)
  Receive Date: 20170703
  Receipt Date: 20170703
  Transmission Date: 20171127
  Serious: Yes (Hospitalization)
  Sender: FDA-Public Use
  Company Number: GR-MYLANLABS-2017M1038688

PATIENT

DRUGS (5)
  1. VELBE [Concomitant]
     Active Substance: VINBLASTINE SULFATE
     Indication: PRECURSOR T-LYMPHOBLASTIC LYMPHOMA/LEUKAEMIA
     Dosage: 10 MG, UNK
     Route: 042
  2. ENDOXAN [Concomitant]
     Active Substance: CYCLOPHOSPHAMIDE
     Indication: PRECURSOR T-LYMPHOBLASTIC LYMPHOMA/LEUKAEMIA
     Dosage: 500 MG, BID
     Route: 042
  3. EPIRUBICIN [Suspect]
     Active Substance: EPIRUBICIN
     Indication: PRECURSOR T-LYMPHOBLASTIC LYMPHOMA/LEUKAEMIA
     Dosage: 85 MG, QD
     Route: 042
  4. UROMITEXAN [Concomitant]
     Active Substance: MESNA
     Indication: PRECURSOR T-LYMPHOBLASTIC LYMPHOMA/LEUKAEMIA
     Dosage: 500 MG, BID
     Route: 042
  5. DEXATON [Concomitant]
     Indication: PRECURSOR T-LYMPHOBLASTIC LYMPHOMA/LEUKAEMIA
     Dosage: UNK

REACTIONS (6)
  - Skin necrosis [Recovered/Resolved]
  - Oedema [Recovered/Resolved]
  - Ulcer [Recovering/Resolving]
  - Vessel puncture site pain [Unknown]
  - Extravasation [Recovered/Resolved]
  - Erythema [Recovered/Resolved]
